FAERS Safety Report 8429053 (Version 5)
Quarter: 2012Q4

REPORT INFORMATION
  Report Type: 
  Country: IE (occurrence: IE)
  Receive Date: 20120227
  Receipt Date: 20121210
  Transmission Date: 20130627
  Serious: Yes (Death, Hospitalization)
  Sender: FDA-Public Use
  Company Number: PHFR2012IE001376

PATIENT
  Age: 58 Year
  Sex: Female

DRUGS (11)
  1. CLOZARIL [Suspect]
     Indication: SCHIZOPHRENIA
     Dosage: 400 mg, daily
     Route: 048
     Dates: start: 20101207
  2. CLOZARIL [Suspect]
     Dosage: 110 mg
     Route: 048
  3. TAZOCIN [Concomitant]
     Dosage: 13.5 mg, daily
     Route: 042
  4. MORPHINE [Concomitant]
     Dosage: 12.5 mg, daily
     Route: 042
  5. CYCLIZINE [Concomitant]
     Dosage: 50 mg, daily
     Route: 042
  6. HYOSCINE [Concomitant]
     Dosage: 800 mg, daily
     Route: 042
  7. HYDROCORTISONE [Concomitant]
  8. ANXICALM [Concomitant]
     Indication: CARDIAC FAILURE CONGESTIVE
     Dosage: 2 mg
     Route: 048
  9. CALCICHEW D3 [Concomitant]
     Dosage: UNK UKN, UNK
  10. MONOMAX [Concomitant]
     Dosage: 30 U
     Route: 058
     Dates: start: 2011
  11. BUMETANIDE [Concomitant]
     Indication: CARDIAC FAILURE CONGESTIVE
     Dosage: 1 mg, QD
     Route: 048

REACTIONS (9)
  - Clostridial infection [Fatal]
  - Abdominal pain [Fatal]
  - Gastrointestinal infection [Fatal]
  - Megacolon [Fatal]
  - Sepsis [Unknown]
  - Intestinal perforation [Unknown]
  - General physical health deterioration [Unknown]
  - Malaise [Unknown]
  - Intestinal obstruction [Unknown]
